FAERS Safety Report 20802325 (Version 1)
Quarter: 2022Q2

REPORT INFORMATION
  Report Type: Spontaneous
  Country: US (occurrence: US)
  Receive Date: 20220509
  Receipt Date: 20220509
  Transmission Date: 20220720
  Serious: No
  Sender: FDA-Public Use
  Company Number: US-BRISTOL-MYERS SQUIBB COMPANY-2022-035837

PATIENT
  Sex: Male

DRUGS (2)
  1. REVLIMID [Suspect]
     Active Substance: LENALIDOMIDE
     Indication: Leukaemia monocytic
     Dosage: ONCE DAILY FOR 14 DAYS ON, THEN 7 DAYS OFF
     Route: 048
     Dates: start: 20220207
  2. VELCADE [Concomitant]
     Active Substance: BORTEZOMIB
     Indication: Leukaemia monocytic
     Dosage: ON DAYS 1, 8, 15 OF ?21-DAY CYCLE

REACTIONS (7)
  - Fatigue [Not Recovered/Not Resolved]
  - Muscle spasms [Not Recovered/Not Resolved]
  - Muscle spasms [Not Recovered/Not Resolved]
  - Skin hyperpigmentation [Not Recovered/Not Resolved]
  - Oedema [Not Recovered/Not Resolved]
  - Ageusia [Not Recovered/Not Resolved]
  - Off label use [Unknown]
